FAERS Safety Report 6170218-9 (Version None)
Quarter: 2009Q2

REPORT INFORMATION
  Report Type: 
  Country: None (occurrence: None)
  Receive Date: 20090428
  Receipt Date: 20090420
  Transmission Date: 20091009
  Serious: Yes (Other)
  Sender: FDA-Public Use
  Company Number: PHEH2007US07590

PATIENT
  Sex: Female

DRUGS (4)
  1. AREDIA [Suspect]
     Indication: OSTEOPOROSIS
     Dosage: 30 MG, QW3
     Route: 042
     Dates: start: 20000101, end: 20050701
  2. REMICADE [Concomitant]
     Dosage: UNK, UNK
  3. CHEMOTHERAPEUTICS NOS [Concomitant]
  4. METHOTREXATE [Concomitant]

REACTIONS (20)
  - ANAEMIA [None]
  - ANHEDONIA [None]
  - ANXIETY [None]
  - CENTRAL VENOUS CATHETERISATION [None]
  - EMOTIONAL DISTRESS [None]
  - ENDODONTIC PROCEDURE [None]
  - GINGIVAL DISORDER [None]
  - HAEMORRHAGE [None]
  - HYPOPHAGIA [None]
  - JAW DISORDER [None]
  - LIFE EXPECTANCY SHORTENED [None]
  - MOUTH ULCERATION [None]
  - OSTEONECROSIS [None]
  - PAIN [None]
  - SALIVA ALTERED [None]
  - TOOTH DISORDER [None]
  - TOOTH EXTRACTION [None]
  - TOOTH FRACTURE [None]
  - TOOTH LOSS [None]
  - TRANSFUSION [None]
